FAERS Safety Report 7198435-X (Version None)
Quarter: 2010Q4

REPORT INFORMATION
  Report Type: 
  Country: None (occurrence: None)
  Receive Date: 20101227
  Receipt Date: 20101215
  Transmission Date: 20110411
  Serious: Yes (Other)
  Sender: FDA-Public Use
  Company Number: PHHY2010JP85658

PATIENT
  Age: 64 Year
  Sex: Male

DRUGS (5)
  1. DIOVAN [Suspect]
     Indication: HYPERTENSION
     Dosage: 80 MG, UNK
     Route: 048
  2. DIOVAN [Suspect]
     Dosage: 40 MG, UNK
     Route: 048
  3. SPIRONOLACTONE [Suspect]
     Dosage: 50 MG, UNK
  4. SPIRONOLACTONE [Suspect]
     Dosage: 25 MG, UNK
  5. NIFEDIPINE [Concomitant]
     Dosage: 20 MG, UNK

REACTIONS (3)
  - FEELING ABNORMAL [None]
  - HYPOTENSION [None]
  - PRIMARY HYPERALDOSTERONISM [None]
